FAERS Safety Report 23079842 (Version 2)
Quarter: 2023Q4

REPORT INFORMATION
  Report Type: Spontaneous
  Country: US (occurrence: US)
  Receive Date: 20231018
  Receipt Date: 20231115
  Transmission Date: 20240110
  Serious: No
  Sender: FDA-Public Use
  Company Number: US-PFIZER INC-202300330381

PATIENT
  Age: 78 Year
  Sex: Female
  Weight: 92.517 kg

DRUGS (2)
  1. PAXLOVID [Suspect]
     Active Substance: NIRMATRELVIR\RITONAVIR
     Indication: COVID-19 treatment
     Dosage: UNK
     Dates: start: 20231005, end: 20231010
  2. BENYLIN COUGH [DIPHENHYDRAMINE HYDROCHLORIDE] [Concomitant]
     Dosage: UNK
     Dates: start: 20231005, end: 20231013

REACTIONS (3)
  - COVID-19 [Recovered/Resolved]
  - Disease recurrence [Recovered/Resolved]
  - Sinusitis [Unknown]

NARRATIVE: CASE EVENT DATE: 20231015
